FAERS Safety Report 14331823 (Version 3)
Quarter: 2018Q1

REPORT INFORMATION
  Report Type: Spontaneous
  Country: US (occurrence: US)
  Receive Date: 20171228
  Receipt Date: 20180122
  Transmission Date: 20180509
  Serious: Yes (Other)
  Sender: FDA-Public Use
  Company Number: US-BAYER-2017-245109

PATIENT
  Age: 61 Year
  Sex: Male
  Weight: 62.59 kg

DRUGS (13)
  1. PROMACTA [Concomitant]
     Active Substance: ELTROMBOPAG OLAMINE
  2. AVASTIN [Concomitant]
     Active Substance: BEVACIZUMAB
  3. LIDOCAINE W/PRILOCAINE [Concomitant]
     Active Substance: LIDOCAINE\PRILOCAINE
  4. NEUPOGEN [Concomitant]
     Active Substance: FILGRASTIM
     Dosage: UNK
  5. PROCRIT [Concomitant]
     Active Substance: ERYTHROPOIETIN
  6. LOSARTAN. [Concomitant]
     Active Substance: LOSARTAN
     Dosage: UNK
  7. LEVOTHYROXINE. [Concomitant]
     Active Substance: LEVOTHYROXINE
  8. OXALIPLATIN. [Concomitant]
     Active Substance: OXALIPLATIN
  9. STIVARGA [Suspect]
     Active Substance: REGORAFENIB
     Indication: COLON CANCER
     Dosage: 160 MG, QD (ONCE DAILY FOR 21/28 DAYS)
     Route: 048
     Dates: start: 201712, end: 201712
  10. PANTOPRAZOLE [Concomitant]
     Active Substance: PANTOPRAZOLE
  11. STIVARGA [Suspect]
     Active Substance: REGORAFENIB
     Indication: COLON CANCER
     Dosage: UNK
     Route: 048
     Dates: start: 20171213, end: 201712
  12. PROCHLORPERAZINE MALEATE. [Concomitant]
     Active Substance: PROCHLORPERAZINE MALEATE
     Dosage: UNK
  13. URSODIOL. [Concomitant]
     Active Substance: URSODIOL

REACTIONS (8)
  - Dysphonia [None]
  - Hypertension [None]
  - Fatigue [None]
  - Blood pressure inadequately controlled [Unknown]
  - Headache [None]
  - Asthenia [None]
  - Temperature intolerance [None]
  - Rash [Unknown]

NARRATIVE: CASE EVENT DATE: 201712
